FAERS Safety Report 7932182-9 (Version None)
Quarter: 2011Q4

REPORT INFORMATION
  Report Type: 
  Country: None (occurrence: None)
  Receive Date: 20111121
  Receipt Date: 20111110
  Transmission Date: 20120403
  Serious: Yes (Other)
  Sender: FDA-Public Use
  Company Number: US-ASTRAZENECA-2011SE68660

PATIENT
  Age: 51 Year
  Sex: Female
  Weight: 45.4 kg

DRUGS (8)
  1. HIP DRUG [Concomitant]
  2. BERMOCRYPTAINE [Concomitant]
     Indication: PITUITARY TUMOUR
  3. CLONAZEPAM [Concomitant]
  4. PAIN MEDICATION [Concomitant]
  5. SEROQUEL XR [Suspect]
     Indication: INSOMNIA
     Route: 048
  6. MUSCLE RELAXANT [Concomitant]
  7. INFLAMMATORY DRUG [Concomitant]
  8. THYROID DRUG [Concomitant]

REACTIONS (13)
  - AUTOIMMUNE THYROIDITIS [None]
  - VISUAL FIELD DEFECT [None]
  - INTERVERTEBRAL DISC PROTRUSION [None]
  - PITUITARY TUMOUR [None]
  - FEELING HOT [None]
  - MYALGIA [None]
  - BLOOD PROLACTIN ABNORMAL [None]
  - OFF LABEL USE [None]
  - WEIGHT INCREASED [None]
  - BREAST DISORDER [None]
  - BREAST PAIN [None]
  - BREAST ENGORGEMENT [None]
  - MYOPATHY [None]
